FAERS Safety Report 8917627 (Version 2)
Quarter: 2018Q2

REPORT INFORMATION
  Report Type: Spontaneous
  Country: US (occurrence: US)
  Receive Date: 20121119
  Receipt Date: 20180607
  Transmission Date: 20180711
  Serious: Yes (Hospitalization, Other)
  Sender: FDA-Public Use
  Company Number: US-009507513-1206USA04848

PATIENT
  Sex: Female
  Weight: 61.22 kg

DRUGS (8)
  1. FOSAMAX [Suspect]
     Active Substance: ALENDRONATE SODIUM
     Indication: OSTEOPENIA
     Dosage: 10 MG, QD
     Route: 048
     Dates: end: 20120510
  2. FOSAMAX [Suspect]
     Active Substance: ALENDRONATE SODIUM
     Indication: OSTEOPENIA
     Dosage: 35 MG, QW
     Route: 048
  3. FOSAMAX [Suspect]
     Active Substance: ALENDRONATE SODIUM
     Indication: OSTEOPOROSIS PROPHYLAXIS
  4. ALENDRONATE SODIUM. [Suspect]
     Active Substance: ALENDRONATE SODIUM
     Indication: OSTEOPENIA
  5. FOSAMAX [Suspect]
     Active Substance: ALENDRONATE SODIUM
     Indication: OSTEOPOROSIS PROPHYLAXIS
  6. FOSAMAX [Suspect]
     Active Substance: ALENDRONATE SODIUM
     Indication: OSTEOPENIA
     Dosage: 70 MG, QW
     Route: 048
     Dates: start: 200011, end: 200803
  7. FOSAMAX [Suspect]
     Active Substance: ALENDRONATE SODIUM
     Indication: OSTEOPOROSIS PROPHYLAXIS
  8. ALENDRONATE SODIUM. [Suspect]
     Active Substance: ALENDRONATE SODIUM
     Indication: OSTEOPOROSIS PROPHYLAXIS
     Dosage: 70 MG, UNK
     Route: 048
     Dates: start: 200804, end: 201007

REACTIONS (22)
  - Macular degeneration [Unknown]
  - Upper respiratory tract infection [Unknown]
  - Carpal tunnel decompression [Unknown]
  - Fall [Unknown]
  - Smear cervix abnormal [Unknown]
  - Bone density decreased [Unknown]
  - Actinic keratosis [Unknown]
  - Herpes zoster [Unknown]
  - Psoriasis [Unknown]
  - Hypertension [Unknown]
  - Femur fracture [Unknown]
  - Fall [Unknown]
  - Tooth extraction [Unknown]
  - Tooth disorder [Unknown]
  - Carpal tunnel decompression [Unknown]
  - Dyslipidaemia [Unknown]
  - Eczema [Unknown]
  - Vulvovaginal dryness [Unknown]
  - Femur fracture [Unknown]
  - Dyshidrotic eczema [Unknown]
  - Haemorrhagic anaemia [Recovered/Resolved]
  - Anaemia postoperative [Recovered/Resolved]

NARRATIVE: CASE EVENT DATE: 2002
